FAERS Safety Report 20196828 (Version 3)
Quarter: 2022Q1

REPORT INFORMATION
  Report Type: Spontaneous
  Country: PT (occurrence: PT)
  Receive Date: 20211217
  Receipt Date: 20220217
  Transmission Date: 20220423
  Serious: Yes (Other)
  Sender: FDA-Public Use
  Company Number: PT-PFIZER INC-202101644461

PATIENT

DRUGS (1)
  1. DOXYCYCLINE [Suspect]
     Active Substance: DOXYCYCLINE
     Indication: Eczema herpeticum
     Dosage: 1 DOSAGE FORM
     Route: 065

REACTIONS (4)
  - Toxic skin eruption [Recovered/Resolved]
  - Dry skin [Unknown]
  - Pruritus [Unknown]
  - Intentional product use issue [Recovered/Resolved]
